FAERS Safety Report 8949816 (Version 1)
Quarter: 2012Q4

REPORT INFORMATION
  Report Type: Report from Study
  Country: IT (occurrence: IT)
  Receive Date: 20121206
  Receipt Date: 20121206
  Transmission Date: 20130627
  Serious: Yes (Life-Threatening)
  Sender: FDA-Public Use
  Company Number: IT-ROCHE-1154712

PATIENT
  Age: 75 Year
  Sex: Male
  Weight: 83 kg

DRUGS (8)
  1. BEVACIZUMAB [Suspect]
     Indication: COLORECTAL CANCER
     Dosage: 7.5 mg/kg/ die/
     Route: 041
     Dates: start: 20120109, end: 20120423
  2. CAPECITABINE [Suspect]
     Indication: COLORECTAL CANCER
     Route: 048
     Dates: start: 20120109, end: 20120423
  3. TACHIDOL [Concomitant]
  4. PREDNISONE [Concomitant]
  5. ERYTHROPOIETIN [Concomitant]
  6. LANSOPRAZOLE [Concomitant]
  7. PERIDOL [Concomitant]
  8. IMOVANE [Concomitant]

REACTIONS (1)
  - Gastrointestinal perforation [Recovered/Resolved]
